FAERS Safety Report 20610666 (Version 1)
Quarter: 2022Q1

REPORT INFORMATION
  Report Type: Spontaneous
  Country: NL (occurrence: NL)
  Receive Date: 20220318
  Receipt Date: 20220318
  Transmission Date: 20220423
  Serious: Yes (Other)
  Sender: FDA-Public Use
  Company Number: None

PATIENT
  Sex: Female
  Weight: 85 kg

DRUGS (1)
  1. MESALAMINE [Suspect]
     Active Substance: MESALAMINE
     Indication: Colitis ulcerative
     Dosage: 2-4 GRAMS, BUT NOW THE COMPLAINT ALSO WITH ENEMA 4GR,  MSR FORM STRENGTH: 500MG / BRAND NAME NOT SPE
     Dates: start: 2021, end: 2021

REACTIONS (3)
  - Mental impairment [Recovered/Resolved]
  - Renal impairment [Unknown]
  - Fatigue [Recovered/Resolved]
